FAERS Safety Report 4581699-6 (Version None)
Quarter: 2005Q1

REPORT INFORMATION
  Report Type: 
  Country: None (occurrence: None)
  Receive Date: 20050214
  Receipt Date: 20041220
  Transmission Date: 20050727
  Serious: No
  Sender: FDA-Public Use
  Company Number: US-GLAXOSMITHKLINE-A0538049A

PATIENT
  Age: 32 Year
  Sex: Female

DRUGS (3)
  1. LAMICTAL [Suspect]
     Indication: BIPOLAR DISORDER
     Dosage: 300MG AT NIGHT
     Route: 048
     Dates: start: 20041013
  2. KLONOPIN [Concomitant]
  3. NEXIUM [Concomitant]

REACTIONS (2)
  - ACNE [None]
  - MENSTRUAL DISORDER [None]
